FAERS Safety Report 9245780 (Version 5)
Quarter: 2013Q3

REPORT INFORMATION
  Report Type: Spontaneous
  Country: US (occurrence: US)
  Receive Date: 20130422
  Receipt Date: 20130819
  Transmission Date: 20140515
  Serious: Yes (Other)
  Sender: FDA-Public Use
  Company Number: US-VERTEX PHARMACEUTICALS INC.-2013-005172

PATIENT
  Age: 60 Year
  Sex: Male
  Weight: 66 kg

DRUGS (6)
  1. INCIVEK [Suspect]
     Indication: HEPATITIS C
     Dosage: 750 MG, TID
     Route: 048
     Dates: start: 20130415, end: 201306
  2. COPEGUS [Suspect]
     Indication: HEPATITIS C
     Dosage: 600 MG IN AM; 400 MG IN PM
     Route: 048
     Dates: start: 20130415
  3. COPEGUS [Suspect]
     Dosage: 400 MG, BID
     Route: 048
     Dates: start: 201306
  4. PEGASYS [Suspect]
     Indication: HEPATITIS C
     Dosage: 180 ?G, QW
     Route: 058
     Dates: start: 20130415
  5. OXYCODONE [Concomitant]
     Indication: PAIN
     Dosage: 20 MG, QD
     Route: 048
  6. LISINOPRIL [Concomitant]
     Indication: HYPERTENSION

REACTIONS (20)
  - Rash papular [Recovered/Resolved]
  - Dyspnoea [Not Recovered/Not Resolved]
  - Local swelling [Not Recovered/Not Resolved]
  - Middle ear effusion [Not Recovered/Not Resolved]
  - Ear swelling [Not Recovered/Not Resolved]
  - Asthenia [Not Recovered/Not Resolved]
  - Eye swelling [Not Recovered/Not Resolved]
  - Local swelling [Not Recovered/Not Resolved]
  - Rash morbilliform [Not Recovered/Not Resolved]
  - Swelling face [Unknown]
  - Skin exfoliation [Unknown]
  - Haemoglobin decreased [Not Recovered/Not Resolved]
  - Haematochezia [Recovered/Resolved]
  - Diarrhoea [Unknown]
  - Anal pruritus [Not Recovered/Not Resolved]
  - Anorectal discomfort [Not Recovered/Not Resolved]
  - Pruritus [Unknown]
  - Nausea [Not Recovered/Not Resolved]
  - Rash [Recovered/Resolved]
  - Dry skin [Unknown]
